FAERS Safety Report 8480874-8 (Version None)
Quarter: 2012Q2

REPORT INFORMATION
  Report Type: 
  Country: None (occurrence: None)
  Receive Date: 20120625
  Receipt Date: 20120612
  Transmission Date: 20120825
  Serious: Yes (Death)
  Sender: FDA-Public Use
  Company Number: US-2012-10729

PATIENT
  Age: 8 Month

DRUGS (2)
  1. CYCLOPHOSPHAMIDE [Suspect]
     Indication: BONE MARROW CONDITIONING REGIMEN
     Dosage: 200 MG/KG,
  2. BUSULFAN [Suspect]
     Indication: BONE MARROW CONDITIONING REGIMEN
     Dosage: 16 MG/KG,

REACTIONS (2)
  - GRAFT VERSUS HOST DISEASE [None]
  - ALVEOLAR PROTEINOSIS [None]
